FAERS Safety Report 4945898-3 (Version None)
Quarter: 2006Q1

REPORT INFORMATION
  Report Type: 
  Country: None (occurrence: None)
  Receive Date: 20060117
  Receipt Date: 20041129
  Transmission Date: 20060701
  Serious: Yes (Hospitalization)
  Sender: FDA-Public Use
  Company Number: A03200500235

PATIENT
  Age: 70 Year
  Sex: Male

DRUGS (19)
  1. PLAVIX [Suspect]
     Dosage: 75 MG QD - ORAL
     Route: 048
     Dates: end: 20040831
  2. ASPIRIN [Suspect]
     Dosage: 81 MG QD - ORAL
     Route: 048
     Dates: start: 20040818, end: 20040901
  3. AVASTIN [Suspect]
     Indication: COLORECTAL CANCER METASTATIC
     Dosage: INTRAVENOUS NOS
     Dates: start: 20040809
  4. ERLOTINIB [Concomitant]
  5. OXALIPLATIN [Concomitant]
  6. FLUOROURACIL [Concomitant]
  7. LEUCOVORIN [Concomitant]
  8. METOPROLOL TARTRATE [Concomitant]
  9. ATORVASTATIN CALCIUM [Concomitant]
  10. FUROSEMIDE [Concomitant]
  11. METFORMIN [Concomitant]
  12. ISOSORBIDE DINITRATE [Concomitant]
  13. MEGESTROL ACETATE [Concomitant]
  14. ZOLPIDEM TARTRATE [Concomitant]
  15. LEVOFLOXACIN [Concomitant]
  16. MOXIFLOXACIN HYDROCHLORIDE [Concomitant]
  17. PROCHLORPERAZINE EDISYLATE [Concomitant]
  18. AMLODIPINE BESYLATE [Concomitant]
  19. GLYBURIDE [Concomitant]

REACTIONS (2)
  - EPISTAXIS [None]
  - HAEMATOCRIT DECREASED [None]
